FAERS Safety Report 9397900 (Version 2)
Quarter: 2013Q3

REPORT INFORMATION
  Report Type: Spontaneous
  Country: US (occurrence: None)
  Receive Date: 20130709
  Receipt Date: 20130819
  Transmission Date: 20140515
  Serious: Yes (Death)
  Sender: FDA-Public Use
  Company Number: 2013P1011199

PATIENT
  Sex: Female

DRUGS (1)
  1. DIGOXIN [Suspect]
     Route: 048

REACTIONS (1)
  - Death [None]
